FAERS Safety Report 20498842 (Version 1)
Quarter: 2022Q1

REPORT INFORMATION
  Report Type: Spontaneous
  Country: US (occurrence: US)
  Receive Date: 20220222
  Receipt Date: 20220222
  Transmission Date: 20220424
  Serious: No
  Sender: FDA-Public Use
  Company Number: US-GLAXOSMITHKLINE-USCH2022AMR006732

PATIENT
  Age: 58 Year
  Sex: Male

DRUGS (1)
  1. ACETAMINOPHEN\ASPIRIN\CAFFEINE [Suspect]
     Active Substance: ACETAMINOPHEN\ASPIRIN\CAFFEINE
     Indication: Asthenia
     Dosage: BID
     Dates: start: 20220113

REACTIONS (2)
  - Intentional product use issue [Unknown]
  - Drug effective for unapproved indication [Unknown]
